FAERS Safety Report 23235584 (Version 2)
Quarter: 2023Q4

REPORT INFORMATION
  Report Type: Spontaneous
  Country: TW (occurrence: TW)
  Receive Date: 20231128
  Receipt Date: 20231204
  Transmission Date: 20240109
  Serious: Yes (Other)
  Sender: FDA-Public Use
  Company Number: TW-MLMSERVICE-20231113-4658938-1

PATIENT
  Age: 46 Year
  Sex: Female

DRUGS (9)
  1. METHOTREXATE SODIUM [Suspect]
     Active Substance: METHOTREXATE SODIUM
     Indication: Immunosuppressant drug therapy
     Dosage: 5 MG, WEEKLY
  2. METHYLPREDNISOLONE SODIUM SUCCINATE [Suspect]
     Active Substance: METHYLPREDNISOLONE SODIUM SUCCINATE
     Indication: Immunosuppressant drug therapy
     Dosage: FREQ:3 {TOTAL};THREE DOSES OF MTP PULSE THERAPY
     Route: 040
     Dates: start: 2019, end: 2019
  3. TACROLIMUS [Suspect]
     Active Substance: TACROLIMUS
     Indication: Immunosuppressant drug therapy
     Dosage: 11 MG, 1X/DAY
  4. SULFASALAZINE [Suspect]
     Active Substance: SULFASALAZINE
     Indication: Immunosuppressant drug therapy
     Dosage: 2 G, 1X/DAY
  5. MYCOPHENOLATE SODIUM [Suspect]
     Active Substance: MYCOPHENOLATE SODIUM
     Indication: Immunosuppressant drug therapy
     Dosage: 1440 MG, 1X/DAY
  6. PREDNISOLONE [Suspect]
     Active Substance: PREDNISOLONE
     Indication: Immunosuppressant drug therapy
     Dosage: 5 MG, 1X/DAY
  7. RITUXIMAB [Suspect]
     Active Substance: RITUXIMAB
     Indication: Immunosuppressant drug therapy
     Dosage: 500 MG
     Dates: start: 2015
  8. THYMOCYTE IMMUNE GLOBULIN NOS [Suspect]
     Active Substance: THYMOCYTE IMMUNE GLOBULIN NOS
     Indication: Immunosuppressant drug therapy
     Dosage: FREQ:3 {TOTAL};3 DOSES OF ATG
     Dates: start: 2017, end: 2017
  9. THYMOCYTE IMMUNE GLOBULIN NOS [Suspect]
     Active Substance: THYMOCYTE IMMUNE GLOBULIN NOS
     Dosage: FREQ:3 {TOTAL};3 DOSES OF ATG
     Dates: start: 2019, end: 2019

REACTIONS (2)
  - Chorioretinitis [Recovered/Resolved]
  - Cryptococcosis [Recovered/Resolved]

NARRATIVE: CASE EVENT DATE: 20200501
